FAERS Safety Report 21643417 (Version 1)
Quarter: 2022Q4

REPORT INFORMATION
  Report Type: Spontaneous
  Country: TW (occurrence: TW)
  Receive Date: 20221125
  Receipt Date: 20221125
  Transmission Date: 20230113
  Serious: Yes (Death, Other)
  Sender: FDA-Public Use
  Company Number: TW-SUN PHARMACEUTICAL INDUSTRIES LTD-2022RR-365494

PATIENT
  Age: 44 Year
  Sex: Male
  Weight: 72 kg

DRUGS (2)
  1. GEMCITABINE [Suspect]
     Active Substance: GEMCITABINE
     Indication: Solitary fibrous tumour
     Dosage: 600 MILLIGRAM/SQ. METER, TWO CYCLES
     Route: 065
  2. PACLITAXEL [Suspect]
     Active Substance: PACLITAXEL
     Indication: Solitary fibrous tumour
     Dosage: 80 MILLIGRAM/SQ. METER, TWO CYCLES
     Route: 065

REACTIONS (3)
  - Disease progression [Fatal]
  - Therapeutic product effect incomplete [Unknown]
  - Condition aggravated [Unknown]
